FAERS Safety Report 9511420 (Version 1)
Quarter: 2013Q3

REPORT INFORMATION
  Report Type: Report from Study
  Country: DE (occurrence: DE)
  Receive Date: 20130910
  Receipt Date: 20130910
  Transmission Date: 20140515
  Serious: Yes (Hospitalization)
  Sender: FDA-Public Use
  Company Number: DE-BRISTOL-MYERS SQUIBB COMPANY-19348176

PATIENT
  Sex: Female

DRUGS (3)
  1. CARBOPLATIN [Suspect]
     Indication: OVARIAN CANCER
     Dosage: LAST ADMINISTRATION BEFORE ONSET OF SAE WAS ON 07/AUG/2013
     Route: 042
     Dates: start: 20130424
  2. PACLITAXEL [Suspect]
     Indication: OVARIAN CANCER
     Dosage: LAST ADMINISTRATION BEFORE ONSET OF SAE WAS ON 07/AUG/2013
     Route: 042
     Dates: start: 20130424
  3. BEVACIZUMAB [Suspect]
     Indication: OVARIAN CANCER
     Dosage: LAST ADMINISTRATION BEFORE ONSET OF SAE WAS ON 07/AUG/2013
     Route: 042
     Dates: start: 20130515

REACTIONS (1)
  - Pelvic fracture [Not Recovered/Not Resolved]
